FAERS Safety Report 14069655 (Version 3)
Quarter: 2017Q4

REPORT INFORMATION
  Report Type: Spontaneous
  Country: US (occurrence: US)
  Receive Date: 20171010
  Receipt Date: 20171103
  Transmission Date: 20180321
  Serious: Yes (Other)
  Sender: FDA-Public Use
  Company Number: US-GLAXOSMITHKLINE-US2017153001

PATIENT
  Age: 59 Year
  Sex: Male
  Weight: 92.97 kg

DRUGS (5)
  1. SYMBICORT [Concomitant]
     Active Substance: BUDESONIDE\FORMOTEROL FUMARATE DIHYDRATE
  2. PROAIR HFA [Concomitant]
     Active Substance: ALBUTEROL SULFATE
  3. NASOCORT [Concomitant]
     Active Substance: BUDESONIDE
  4. LORATADINE. [Concomitant]
     Active Substance: LORATADINE
  5. NUCALA [Suspect]
     Active Substance: MEPOLIZUMAB
     Indication: ASTHMA
     Dosage: 100 MG, CYC
     Route: 058
     Dates: start: 20170906, end: 20170927

REACTIONS (9)
  - Muscle spasms [Recovering/Resolving]
  - Pain in extremity [Recovering/Resolving]
  - Headache [Recovering/Resolving]
  - Hepatic mass [Unknown]
  - Biopsy liver [Unknown]
  - Restless legs syndrome [Recovering/Resolving]
  - Photophobia [Not Recovered/Not Resolved]
  - Dizziness [Recovering/Resolving]
  - Vision blurred [Recovering/Resolving]

NARRATIVE: CASE EVENT DATE: 20170906
